FAERS Safety Report 15824491 (Version 1)
Quarter: 2019Q1

REPORT INFORMATION
  Report Type: Report from Study
  Country: None (occurrence: US)
  Receive Date: 20190115
  Receipt Date: 20190115
  Transmission Date: 20190417
  Serious: Yes (Other)
  Sender: FDA-Public Use
  Company Number: US-ABBVIE-17K-163-2121537-00

PATIENT
  Sex: Female

DRUGS (1)
  1. HUMIRA [Suspect]
     Active Substance: ADALIMUMAB
     Indication: CROHN^S DISEASE
     Route: 058

REACTIONS (7)
  - Short-bowel syndrome [Unknown]
  - Intestinal obstruction [Unknown]
  - Diarrhoea [Unknown]
  - Swelling [Unknown]
  - Dyschezia [Unknown]
  - Arthropod bite [Unknown]
  - Abnormal faeces [Unknown]
